FAERS Safety Report 5405735-X (Version None)
Quarter: 2007Q3

REPORT INFORMATION
  Report Type: 
  Country: None (occurrence: None)
  Receive Date: 20070806
  Receipt Date: 20070725
  Transmission Date: 20080115
  Serious: Yes (Other)
  Sender: FDA-Public Use
  Company Number: CA-JNJFOC-20070601364

PATIENT
  Sex: Male
  Weight: 85.5 kg

DRUGS (2)
  1. REMICADE [Suspect]
     Indication: RHEUMATOID ARTHRITIS
     Dosage: TOTAL 8 INFUSIONS
     Route: 042
  2. PREDNISIONE [Concomitant]

REACTIONS (1)
  - MYOPIA [None]
